FAERS Safety Report 10218253 (Version 1)
Quarter: 2014Q2

REPORT INFORMATION
  Report Type: Other
  Country: CH (occurrence: CH)
  Receive Date: 20140605
  Receipt Date: 20140605
  Transmission Date: 20141212
  Serious: Yes (Other)
  Sender: FDA-Public Use
  Company Number: CH-BRISTOL-MYERS SQUIBB COMPANY-20926846

PATIENT
  Age: 60 Year
  Sex: Male

DRUGS (1)
  1. IPILIMUMAB [Suspect]
     Indication: MALIGNANT MELANOMA

REACTIONS (5)
  - Hypophysitis [Unknown]
  - Thyroiditis [Unknown]
  - Adrenalitis [Unknown]
  - Colitis [Unknown]
  - Sepsis [Unknown]
